FAERS Safety Report 7796074-0 (Version None)
Quarter: 2011Q4

REPORT INFORMATION
  Report Type: 
  Country: None (occurrence: None)
  Receive Date: 20111004
  Receipt Date: 20110922
  Transmission Date: 20120403
  Serious: Yes (Hospitalization)
  Sender: FDA-Public Use
  Company Number: IT-ELI_LILLY_AND_COMPANY-IT201109006503

PATIENT
  Sex: Male

DRUGS (7)
  1. DEXAMETHASONE SODIUM PHOSPHATE [Concomitant]
     Dosage: 1 DF
     Route: 042
  2. ALIMTA [Suspect]
     Indication: MESOTHELIOMA MALIGNANT
     Dosage: 1 DF/CYCLE
     Route: 042
     Dates: start: 20110721, end: 20110817
  3. ZOFRAN [Concomitant]
     Dosage: 1 DF
     Route: 042
  4. DOBETIN [Concomitant]
  5. RANIDIL [Concomitant]
  6. CARBOPLATIN [Concomitant]
     Indication: MESOTHELIOMA MALIGNANT
     Dosage: 200 MG
     Route: 042
     Dates: start: 20110721, end: 20110817
  7. FOLINA [Concomitant]
     Dosage: 1 DF
     Route: 048

REACTIONS (4)
  - ERYTHEMA [None]
  - DYSPNOEA [None]
  - BRONCHOSPASM [None]
  - LOSS OF CONSCIOUSNESS [None]
